FAERS Safety Report 6815753-2 (Version None)
Quarter: 2010Q3

REPORT INFORMATION
  Report Type: 
  Country: None (occurrence: None)
  Receive Date: 20100703
  Receipt Date: 20100330
  Transmission Date: 20110219
  Serious: Yes (Other)
  Sender: FDA-Public Use
  Company Number: US-ASTRAZENECA-2006UW09047

PATIENT
  Age: 40 Year
  Sex: Female

DRUGS (10)
  1. SEROQUEL [Suspect]
     Indication: BIPOLAR DISORDER
     Route: 048
     Dates: start: 19990101
  2. SEROQUEL [Suspect]
     Route: 048
     Dates: start: 20030712
  3. RISPERDAL [Suspect]
     Indication: BIPOLAR DISORDER
     Dates: start: 19970101
  4. ZYPREXA [Suspect]
     Indication: BIPOLAR DISORDER
     Dates: start: 19970101, end: 19990101
  5. ASPIRIN [Concomitant]
     Dates: start: 20031217
  6. AVANDIA [Concomitant]
     Dates: start: 20031217
  7. NEURONTIN [Concomitant]
     Dosage: 200-300 MG
     Dates: start: 20031217
  8. HYDROCHLOROTHIAZIDE [Concomitant]
     Dates: start: 20031217
  9. LISINOPRIL [Concomitant]
     Dates: start: 20030802
  10. PREMARIN [Concomitant]
     Dates: start: 20030802

REACTIONS (2)
  - DIABETIC NEUROPATHY [None]
  - TYPE 2 DIABETES MELLITUS [None]
